FAERS Safety Report 11580985 (Version 1)
Quarter: 2015Q4

REPORT INFORMATION
  Report Type: Spontaneous
  Country: GB (occurrence: GB)
  Receive Date: 20151001
  Receipt Date: 20151001
  Transmission Date: 20160304
  Serious: Yes (Life-Threatening, Hospitalization, Other)
  Sender: FDA-Public Use
  Company Number: GB-BRISTOL-MYERS SQUIBB COMPANY-BMS-2015-064255

PATIENT
  Sex: Male

DRUGS (3)
  1. ELIQUIS [Suspect]
     Active Substance: APIXABAN
     Dosage: 5 MG, BID
     Route: 048
     Dates: start: 20150129, end: 20150327
  2. ELIQUIS [Suspect]
     Active Substance: APIXABAN
     Indication: CEREBROVASCULAR ACCIDENT PROPHYLAXIS
     Route: 048
     Dates: start: 20150526, end: 20150727
  3. BISOPROLOL [Concomitant]
     Active Substance: BISOPROLOL
     Indication: ATRIAL FIBRILLATION
     Dosage: PATIENT HAD A BREAK OF 26 DAYS AFTER JUST OVER A MONTH
     Route: 048
     Dates: start: 20150129, end: 20150727

REACTIONS (4)
  - Cardiac tamponade [Recovering/Resolving]
  - Pericardial haemorrhage [Recovering/Resolving]
  - Circulatory collapse [Recovering/Resolving]
  - Multi-organ failure [Recovering/Resolving]

NARRATIVE: CASE EVENT DATE: 20150727
